FAERS Safety Report 6304836-1 (Version None)
Quarter: 2009Q3

REPORT INFORMATION
  Report Type: 
  Country: None (occurrence: None)
  Receive Date: 20090811
  Receipt Date: 20090408
  Transmission Date: 20100115
  Serious: Yes (Hospitalization)
  Sender: FDA-Public Use
  Company Number: PHHO2009FR04001

PATIENT
  Sex: Female
  Weight: 39 kg

DRUGS (4)
  1. RAD 666 RAD+TAB [Suspect]
     Indication: CARCINOID TUMOUR
     Dosage: DOUBLE BLIND
     Route: 048
     Dates: start: 20071205, end: 20090304
  2. RAD 666 RAD+TAB [Suspect]
     Dosage: UNK
     Route: 048
     Dates: start: 20090401
  3. SANDOSTATIN LAR [Suspect]
     Indication: CARCINOID TUMOUR
  4. OCTREOTIDE [Concomitant]

REACTIONS (5)
  - ASTHENIA [None]
  - DIARRHOEA [None]
  - DRUG WITHDRAWAL SYNDROME [None]
  - FLUSHING [None]
  - WEIGHT DECREASED [None]
